FAERS Safety Report 21722599 (Version 2)
Quarter: 2023Q1

REPORT INFORMATION
  Report Type: Spontaneous
  Country: DE (occurrence: DE)
  Receive Date: 20221213
  Receipt Date: 20230202
  Transmission Date: 20230418
  Serious: Yes (Other)
  Sender: FDA-Public Use
  Company Number: DE-PFIZER INC-202201360924

PATIENT
  Age: 70 Year
  Sex: Female
  Weight: 70 kg

DRUGS (8)
  1. BOSULIF [Suspect]
     Active Substance: BOSUTINIB MONOHYDRATE
     Indication: Chronic myeloid leukaemia
     Dosage: 100 MG
     Dates: start: 202204
  2. BOSULIF [Suspect]
     Active Substance: BOSUTINIB MONOHYDRATE
     Dosage: 300 MG, 1X/DAY
     Dates: start: 202208, end: 202212
  3. PREDNISOLONE [Concomitant]
     Active Substance: PREDNISOLONE
     Indication: Psoriatic arthropathy
     Dosage: 5 MG
     Dates: start: 2005
  4. IMRALDI [Concomitant]
     Active Substance: ADALIMUMAB
     Indication: Polyarthritis
     Dosage: 40 MG, CYCLIC (EVERY 14 DAYS)
     Dates: start: 2022
  5. ETORICOXIB [Concomitant]
     Active Substance: ETORICOXIB
     Indication: Polyarthritis
     Dosage: 60 MG, CYCLIC (3 TIMES A WEEK)
     Dates: start: 2019
  6. CHOLECALCIFEROL [Concomitant]
     Active Substance: CHOLECALCIFEROL
     Dosage: UNK, WEEKLY (20 000; 1 PER WEEK)
  7. MAXALT [Concomitant]
     Active Substance: RIZATRIPTAN BENZOATE
     Indication: Migraine
     Dosage: UNK, AS NEEDED (APPROX. 1-2 PER MONTH)
     Dates: start: 2009
  8. SCEMBLIX [Concomitant]
     Active Substance: ASCIMINIB HYDROCHLORIDE
     Indication: Chronic myeloid leukaemia
     Dosage: 40 MG (EVERY 12 HOURS)
     Dates: start: 20230103

REACTIONS (1)
  - Retinal oedema [Recovered/Resolved]

NARRATIVE: CASE EVENT DATE: 20220930
